FAERS Safety Report 8154294 (Version 4)
Quarter: 2012Q4

REPORT INFORMATION
  Report Type: Report from Study
  Country: JP (occurrence: JP)
  Receive Date: 20110923
  Receipt Date: 20120907
  Transmission Date: 20130627
  Serious: Yes (Other)
  Sender: FDA-Public Use
  Company Number: JP-ROCHE-GNE324556

PATIENT
  Age: 82 Year
  Sex: Male

DRUGS (9)
  1. RANIBIZUMAB [Suspect]
     Indication: AGE-RELATED MACULAR DEGENERATION
     Route: 050
     Dates: start: 20101208
  2. RANIBIZUMAB [Suspect]
     Route: 050
     Dates: start: 20110112
  3. RANIBIZUMAB [Suspect]
     Route: 050
     Dates: start: 20110216
  4. RANIBIZUMAB [Suspect]
     Route: 050
     Dates: start: 20110425
  5. RANIBIZUMAB [Suspect]
     Route: 050
     Dates: start: 20110803
  6. RANIBIZUMAB [Suspect]
     Route: 050
     Dates: start: 20110601
  7. WARFARIN [Concomitant]
     Indication: PRODUCT USED FOR UNKNOWN INDICATION
  8. CRAVIT [Concomitant]
     Route: 065
     Dates: start: 201106, end: 201108
  9. VIGAMOX [Concomitant]
     Route: 065
     Dates: start: 201012, end: 201104

REACTIONS (1)
  - Cerebral infarction [Not Recovered/Not Resolved]
